FAERS Safety Report 9179648 (Version 1)
Quarter: 2013Q1

REPORT INFORMATION
  Report Type: Spontaneous
  Country: US (occurrence: US)
  Receive Date: 20130321
  Receipt Date: 20130321
  Transmission Date: 20140127
  Serious: Yes (Other)
  Sender: FDA-Public Use
  Company Number: US-BAXTER-2013BAX010827

PATIENT
  Age: 75 Year
  Sex: Male
  Weight: 64 kg

DRUGS (4)
  1. STERILE WATER FOR IRRIGATION [Suspect]
     Indication: BLADDER IRRIGATION
  2. PROPOFOL [Concomitant]
     Indication: GENERAL ANAESTHESIA
  3. FENTANYL [Concomitant]
     Indication: GENERAL ANAESTHESIA
  4. SEVOFLURANE [Concomitant]
     Indication: GENERAL ANAESTHESIA

REACTIONS (3)
  - Hyponatraemia [Recovered/Resolved]
  - Renal failure acute [Recovered/Resolved with Sequelae]
  - Rhabdomyolysis [Recovered/Resolved]
